FAERS Safety Report 8969300 (Version 1)
Quarter: 2012Q4

REPORT INFORMATION
  Report Type: 
  Country: FR (occurrence: FR)
  Receive Date: 20121217
  Receipt Date: 20121217
  Transmission Date: 20130627
  Serious: Yes (Hospitalization)
  Sender: FDA-Public Use
  Company Number: FR-BAYER-2012-129707

PATIENT
  Age: 90 Year
  Sex: Female

DRUGS (11)
  1. CIFLOX [Suspect]
     Indication: ACUTE PYELONEPHRITIS
     Dosage: 500 mg, BID
     Route: 048
     Dates: start: 20121110, end: 20121113
  2. LYRICA [Interacting]
     Indication: NEURALGIA NOS
     Dosage: 400 mg, BID
     Route: 048
     Dates: start: 2011, end: 20121113
  3. LYRICA [Interacting]
     Indication: NEURALGIA NOS
     Dosage: UNK
     Route: 048
     Dates: start: 20121114
  4. LYRICA [Interacting]
     Indication: NEURALGIA NOS
     Dosage: 400 mg, BID
     Route: 048
     Dates: start: 20121119
  5. CARBAMAZEPINE [Interacting]
     Indication: NEURALGIA NOS
     Dosage: 600 mg, BID
     Route: 048
     Dates: start: 1998, end: 20121113
  6. CARBAMAZEPINE [Interacting]
     Indication: NEURALGIA NOS
     Dosage: UNK
     Route: 048
     Dates: start: 20121114
  7. CARBAMAZEPINE [Interacting]
     Indication: NEURALGIA NOS
     Dosage: 600 mg, BID
     Route: 048
     Dates: start: 20121119
  8. KARDEGIC [ACETYLSALICYLATE LYSINE] [Concomitant]
     Indication: ISCHEMIC STROKE
     Dosage: 160 mg, QD
     Route: 048
     Dates: start: 201009
  9. FUROSEMIDE [Concomitant]
     Indication: HYPERTENSION ARTERIAL
     Dosage: 10 mg, QD
     Route: 048
     Dates: start: 2012
  10. TRAMADOL [Concomitant]
     Dosage: 100 mg, TID
     Route: 048
     Dates: start: 2011, end: 20121113
  11. TRAMADOL [Concomitant]
     Dosage: 100 mg, TID
     Route: 048
     Dates: start: 20121119

REACTIONS (1)
  - Dyskinesia [Recovered/Resolved]
